FAERS Safety Report 25875800 (Version 1)
Quarter: 2025Q4

REPORT INFORMATION
  Report Type: Other
  Country: EU (occurrence: EU)
  Receive Date: 20251003
  Receipt Date: 20251003
  Transmission Date: 20260117
  Serious: Yes (Other)
  Sender: Atnahs Healthcare
  Company Number: None

PATIENT

DRUGS (7)
  1. VALIUM [Suspect]
     Active Substance: DIAZEPAM
     Indication: Mental disorder
     Dosage: 30 MG, DAILY (30 DROPS 3 TIMES A DAY)
     Route: 048
     Dates: start: 20250124, end: 20250218
  2. FLUPENTIXOL [Concomitant]
     Active Substance: FLUPENTIXOL
     Indication: Mental disorder
     Dosage: 200 MG, DAILY
     Route: 048
     Dates: start: 20250210
  3. LOXAPINE [Concomitant]
     Active Substance: LOXAPINE
     Indication: Mental disorder
     Dosage: 200 MG, DAILY
     Route: 048
     Dates: start: 20250214, end: 20250218
  4. OLANZAPINE [Concomitant]
     Active Substance: OLANZAPINE
     Indication: Mental disorder
     Dosage: 15 MG, DAILY
     Route: 048
     Dates: start: 20250212, end: 20250218
  5. SCOPOLAMINE HYDROBROMIDE [Concomitant]
     Active Substance: SCOPOLAMINE HYDROBROMIDE
     Indication: Parkinsonism
     Dosage: 1 MG
     Route: 062
     Dates: start: 20250212, end: 20250218
  6. CEFTRIAXONE SODIUM [Concomitant]
     Active Substance: CEFTRIAXONE SODIUM
     Indication: Lung disorder
     Dosage: 1 G, DAILY
     Route: 048
     Dates: start: 20250215, end: 20250218
  7. SPIRAMYCIN [Concomitant]
     Active Substance: SPIRAMYCIN
     Indication: Lung disorder
     Dosage: 3 MILLION INTERNATIONAL UNIT, Q6HR
     Route: 048
     Dates: start: 20250215, end: 20250217

REACTIONS (3)
  - Respiratory distress [Recovered/Resolved]
  - Sedation [Recovered/Resolved]
  - Overdose [Recovered/Resolved]

NARRATIVE: CASE EVENT DATE: 20250217
